FAERS Safety Report 5807256-9 (Version None)
Quarter: 2008Q3

REPORT INFORMATION
  Report Type: 
  Country: None (occurrence: None)
  Receive Date: 20080711
  Receipt Date: 20080703
  Transmission Date: 20090109
  Serious: Yes (Hospitalization, Other)
  Sender: FDA-Public Use
  Company Number: US-ASTRAZENECA-2008UW13457

PATIENT
  Age: 932 Month
  Sex: Female
  Weight: 56 kg

DRUGS (3)
  1. FASLODEX [Suspect]
     Indication: BREAST CANCER METASTATIC
     Route: 030
     Dates: start: 20080227
  2. FASLODEX [Suspect]
     Dosage: 250 MG EVERY 28 DAYS
     Route: 030
     Dates: end: 20080423
  3. ARIMIDEX [Suspect]
     Indication: BREAST CANCER METASTATIC
     Route: 048
     Dates: start: 20080227, end: 20080519

REACTIONS (3)
  - BLOOD UREA INCREASED [None]
  - CEREBELLAR INFARCTION [None]
  - CEREBRAL ISCHAEMIA [None]
